FAERS Safety Report 24967710 (Version 1)
Quarter: 2025Q1

REPORT INFORMATION
  Report Type: Spontaneous
  Country: CA (occurrence: CA)
  Receive Date: 20250214
  Receipt Date: 20250214
  Transmission Date: 20250408
  Serious: Yes (Other)
  Sender: ROCHE
  Company Number: CA-002147023-NVSC2025CA020667

PATIENT
  Sex: Female

DRUGS (5)
  1. OMALIZUMAB [Suspect]
     Active Substance: OMALIZUMAB
     Indication: Asthma
     Route: 058
  2. OMALIZUMAB [Suspect]
     Active Substance: OMALIZUMAB
     Dosage: 300 MG, Q4W (1 EVERY 4 WEEKS)
     Route: 058
  3. OMALIZUMAB [Suspect]
     Active Substance: OMALIZUMAB
     Dosage: 300 MG, Q4W (1 EVERY 4 WEEKS)
     Route: 058
  4. ALBUTEROL\GUAIFENESIN [Suspect]
     Active Substance: ALBUTEROL\GUAIFENESIN
     Indication: Product used for unknown indication
     Route: 050
  5. ALBUTEROL\GUAIFENESIN [Suspect]
     Active Substance: ALBUTEROL\GUAIFENESIN
     Route: 050

REACTIONS (19)
  - Asthma [Recovering/Resolving]
  - Carboxyhaemoglobin increased [Recovering/Resolving]
  - Chest discomfort [Recovering/Resolving]
  - Cough [Recovering/Resolving]
  - Decreased activity [Recovering/Resolving]
  - Discomfort [Recovering/Resolving]
  - Dizziness [Recovering/Resolving]
  - Food allergy [Recovering/Resolving]
  - Gait disturbance [Recovering/Resolving]
  - Haemoglobin decreased [Recovering/Resolving]
  - Hypersensitivity [Recovering/Resolving]
  - Increased bronchial secretion [Recovering/Resolving]
  - Insomnia [Recovering/Resolving]
  - Lower respiratory tract infection [Recovering/Resolving]
  - Lung diffusion test decreased [Recovering/Resolving]
  - Migraine [Recovering/Resolving]
  - Renal impairment [Recovering/Resolving]
  - Throat clearing [Recovering/Resolving]
  - Wheezing [Recovering/Resolving]
